FAERS Safety Report 7727846-6 (Version None)
Quarter: 2011Q3

REPORT INFORMATION
  Report Type: 
  Country: None (occurrence: None)
  Receive Date: 20110905
  Receipt Date: 20110825
  Transmission Date: 20111222
  Serious: No
  Sender: FDA-Public Use
  Company Number: US-BIOGENIDEC-2010BI030854

PATIENT
  Sex: Female

DRUGS (1)
  1. TYSABRI [Suspect]
     Indication: MULTIPLE SCLEROSIS
     Route: 042
     Dates: start: 20090928, end: 20110628

REACTIONS (25)
  - CONFUSIONAL STATE [None]
  - PARAESTHESIA [None]
  - FALL [None]
  - MUSCLE TIGHTNESS [None]
  - MALAISE [None]
  - FATIGUE [None]
  - URINARY INCONTINENCE [None]
  - FEELING ABNORMAL [None]
  - SPEECH DISORDER [None]
  - APHASIA [None]
  - COORDINATION ABNORMAL [None]
  - STRESS [None]
  - ASTHENIA [None]
  - MALABSORPTION [None]
  - DRUG EFFECT DECREASED [None]
  - MUSCLE SPASMS [None]
  - NERVOUSNESS [None]
  - MENTAL IMPAIRMENT [None]
  - PAIN [None]
  - TENSION [None]
  - ANXIETY [None]
  - DRUG INEFFECTIVE [None]
  - IRRITABILITY [None]
  - BALANCE DISORDER [None]
  - HEADACHE [None]
